FAERS Safety Report 23178742 (Version 1)
Quarter: 2023Q4

REPORT INFORMATION
  Report Type: Spontaneous
  Country: US (occurrence: US)
  Receive Date: 20231113
  Receipt Date: 20231113
  Transmission Date: 20240110
  Serious: No
  Sender: FDA-Public Use
  Company Number: US-PFIZER INC-202300359571

PATIENT
  Age: 44 Year
  Sex: Female
  Weight: 113.4 kg

DRUGS (1)
  1. ZAVZPRET [Suspect]
     Active Substance: ZAVEGEPANT HYDROCHLORIDE
     Indication: Migraine
     Dosage: 10 MG [ONE SPRAY IN NOSTRIL/ 10MG/ACT NASAL SPRAY]
     Route: 045
     Dates: start: 20231103, end: 20231103

REACTIONS (4)
  - Eye swelling [Recovered/Resolved]
  - Thermal burn [Recovered/Resolved]
  - Lacrimation increased [Recovered/Resolved]
  - Headache [Recovered/Resolved]

NARRATIVE: CASE EVENT DATE: 20231103
